FAERS Safety Report 16863977 (Version 1)
Quarter: 2019Q3

REPORT INFORMATION
  Report Type: Spontaneous
  Country: CA (occurrence: CA)
  Receive Date: 20190927
  Receipt Date: 20190927
  Transmission Date: 20191005
  Serious: Yes (Other)
  Sender: FDA-Public Use
  Company Number: CA-CIPHER-2019-CA-002726

PATIENT
  Age: 66 Year
  Sex: Female

DRUGS (5)
  1. PROLIA [Concomitant]
     Active Substance: DENOSUMAB
     Indication: BONE DENSITY ABNORMAL
  2. TIAPROFENIC ACID [Concomitant]
     Active Substance: TIAPROFENIC ACID
     Indication: PAIN
  3. TRAMADOL HYDROCHLORIDE. [Suspect]
     Active Substance: TRAMADOL HYDROCHLORIDE
     Indication: BACK PAIN
     Route: 065
  4. HUMIRA [Suspect]
     Active Substance: ADALIMUMAB
     Indication: RHEUMATOID ARTHRITIS
     Route: 058
  5. CALCIUM DPANTOTHENATE/NICOTIN AMIDE/PYRIDOXINE HYDROCHLORIDE/RIBOFLAVI [Concomitant]
     Indication: BONE DENSITY ABNORMAL

REACTIONS (10)
  - Pain in extremity [Unknown]
  - Sciatica [Unknown]
  - Spinal fracture [Unknown]
  - Back pain [Unknown]
  - Osteoporosis [Unknown]
  - Peripheral swelling [Unknown]
  - Arthralgia [Unknown]
  - Nausea [Unknown]
  - Decreased appetite [Unknown]
  - Drug ineffective [Unknown]
